FAERS Safety Report 4884098-2 (Version None)
Quarter: 2006Q1

REPORT INFORMATION
  Report Type: 
  Country: None (occurrence: None)
  Receive Date: 20060118
  Receipt Date: 20050802
  Transmission Date: 20060701
  Serious: Yes (Hospitalization)
  Sender: FDA-Public Use
  Company Number: US-MERCK-0508USA00955

PATIENT
  Age: 74 Year
  Sex: Male
  Weight: 97 kg

DRUGS (10)
  1. VIOXX [Suspect]
     Indication: ARTHRITIS
     Route: 048
     Dates: start: 20000101, end: 20040901
  2. HYDROCODONE BITARTRATE [Concomitant]
     Route: 048
  3. WARFARIN [Concomitant]
     Route: 048
  4. LISINOPRIL [Concomitant]
     Route: 048
  5. ZOCOR [Concomitant]
     Route: 048
  6. NASAREL [Concomitant]
     Route: 048
  7. ATROVENT [Concomitant]
     Route: 055
  8. METROGEL [Concomitant]
     Route: 065
  9. OVARAS [Concomitant]
     Route: 048
  10. HYTRIN [Concomitant]
     Route: 048

REACTIONS (8)
  - CARPAL TUNNEL SYNDROME [None]
  - DIABETES MELLITUS [None]
  - DYSPNOEA [None]
  - FATIGUE [None]
  - GASTROOESOPHAGEAL REFLUX DISEASE [None]
  - MYOCARDIAL INFARCTION [None]
  - PROSTATIC SPECIFIC ANTIGEN ABNORMAL [None]
  - THROMBOSIS [None]
